FAERS Safety Report 5986061-7 (Version None)
Quarter: 2008Q4

REPORT INFORMATION
  Report Type: 
  Country: None (occurrence: None)
  Receive Date: 20081209
  Receipt Date: 20081202
  Transmission Date: 20090506
  Serious: Yes (Other)
  Sender: FDA-Public Use
  Company Number: US-BAYER-US-2007-025621

PATIENT
  Age: 72 Year
  Sex: Female
  Weight: 82 kg

DRUGS (18)
  1. MAGNEVIST [Suspect]
     Indication: NUCLEAR MAGNETIC RESONANCE IMAGING
     Dates: start: 20051017, end: 20051017
  2. MAGNEVIST [Suspect]
     Dates: start: 20060131, end: 20060131
  3. MAGNEVIST [Suspect]
     Dates: start: 20060503, end: 20060503
  4. MAGNEVIST [Suspect]
     Dates: start: 20060606, end: 20060606
  5. MAGNEVIST [Suspect]
     Dates: start: 20061218, end: 20061218
  6. OMNISCAN [Suspect]
     Indication: NUCLEAR MAGNETIC RESONANCE IMAGING
  7. OPTIMARK [Suspect]
     Indication: NUCLEAR MAGNETIC RESONANCE IMAGING
  8. MULTIHANCE [Suspect]
     Indication: NUCLEAR MAGNETIC RESONANCE IMAGING
  9. PROHANCE [Suspect]
     Indication: NUCLEAR MAGNETIC RESONANCE IMAGING
  10. COUMADIN [Concomitant]
     Indication: HYPERCOAGULATION
     Dosage: UNIT DOSE: 2 MG
  11. NEURONTIN [Concomitant]
  12. LIPITOR [Concomitant]
  13. AMBIEN [Concomitant]
  14. ATENOLOL [Concomitant]
  15. PAXIL [Concomitant]
  16. NORVASC [Concomitant]
  17. COZAAR [Concomitant]
  18. SYNTHROID [Concomitant]

REACTIONS (10)
  - ANHEDONIA [None]
  - ANXIETY [None]
  - EMOTIONAL DISTRESS [None]
  - FIBROSIS [None]
  - GENERAL PHYSICAL HEALTH DETERIORATION [None]
  - MOBILITY DECREASED [None]
  - MUSCLE CONTRACTURE [None]
  - NEPHROGENIC SYSTEMIC FIBROSIS [None]
  - PAIN [None]
  - SCAR [None]
